FAERS Safety Report 19880047 (Version 1)
Quarter: 2021Q3

REPORT INFORMATION
  Report Type: Spontaneous
  Country: US (occurrence: US)
  Receive Date: 20210924
  Receipt Date: 20210924
  Transmission Date: 20211014
  Serious: No
  Sender: FDA-Public Use
  Company Number: US-PFIZER INC-202101110161

PATIENT
  Sex: Female

DRUGS (1)
  1. PREMARIN [Suspect]
     Active Substance: ESTROGENS, CONJUGATED
     Dosage: CUTTING IT IN HALF

REACTIONS (3)
  - Wrong technique in product usage process [Unknown]
  - Hot flush [Unknown]
  - Intentional underdose [Unknown]
